FAERS Safety Report 7419138-X (Version None)
Quarter: 2011Q2

REPORT INFORMATION
  Report Type: 
  Country: None (occurrence: None)
  Receive Date: 20110415
  Receipt Date: 20110412
  Transmission Date: 20111010
  Serious: Yes (Other)
  Sender: FDA-Public Use
  Company Number: US-PFIZER INC-2011067228

PATIENT
  Sex: Male
  Weight: 88.435 kg

DRUGS (1)
  1. ROBITUSSIN COUGH AND CHEST CONGESTION DM MAX [Suspect]
     Dosage: UNK, THREE TIMES A DAY
     Route: 048
     Dates: start: 20110324

REACTIONS (3)
  - SYNCOPE [None]
  - PYREXIA [None]
  - PALPITATIONS [None]
